FAERS Safety Report 8141124-5 (Version None)
Quarter: 2012Q1

REPORT INFORMATION
  Report Type: 
  Country: None (occurrence: None)
  Receive Date: 20120216
  Receipt Date: 20120210
  Transmission Date: 20120608
  Serious: Yes (Hospitalization)
  Sender: FDA-Public Use
  Company Number: JP-BAYER-2012-008445

PATIENT
  Age: 20 Year
  Sex: Female
  Weight: 66.213 kg

DRUGS (4)
  1. YAZ [Suspect]
     Indication: DYSMENORRHOEA
     Dosage: QD
     Route: 048
     Dates: start: 20120105, end: 20120130
  2. NORGESTREL AND ETHINYL ESTRADIOL [Concomitant]
     Indication: MENOMETRORRHAGIA
     Dosage: DAILY DOSE 1 DF
     Route: 048
     Dates: start: 20111220, end: 20111229
  3. YAZ [Suspect]
     Indication: MENOMETRORRHAGIA
  4. PROVERA [Concomitant]
     Indication: MENOMETRORRHAGIA
     Dosage: DAILY DOSE 2 DF
     Route: 048
     Dates: start: 20111207, end: 20111219

REACTIONS (3)
  - MENORRHAGIA [None]
  - ABDOMINAL PAIN [None]
  - ANAEMIA [None]
